FAERS Safety Report 16372061 (Version 1)
Quarter: 2019Q2

REPORT INFORMATION
  Report Type: Spontaneous
  Country: US (occurrence: US)
  Receive Date: 20190424
  Receipt Date: 20190424
  Transmission Date: 20190711
  Serious: Yes (Other)
  Sender: FDA-Public Use
  Company Number: None

PATIENT
  Age: 76 Year
  Sex: Female
  Weight: 68.04 kg

DRUGS (4)
  1. DESVENLAFAXINE 100MG [Suspect]
     Active Substance: DESVENLAFAXINE
     Indication: MAJOR DEPRESSION
     Route: 048
     Dates: start: 20170508
  2. ARMOUR THYROID [Concomitant]
     Active Substance: THYROID, PORCINE
  3. BUSPIRONE [Concomitant]
     Active Substance: BUSPIRONE HYDROCHLORIDE
  4. TEMAZEPAM. [Concomitant]
     Active Substance: TEMAZEPAM

REACTIONS (3)
  - Product substitution issue [None]
  - Therapeutic response decreased [None]
  - Affective disorder [None]

NARRATIVE: CASE EVENT DATE: 20170517
